FAERS Safety Report 18714241 (Version 1)
Quarter: 2021Q1

REPORT INFORMATION
  Report Type: Spontaneous
  Country: NL (occurrence: NL)
  Receive Date: 20210107
  Receipt Date: 20210107
  Transmission Date: 20210419
  Serious: Yes (Hospitalization, Disabling, Other)
  Sender: FDA-Public Use
  Company Number: NL-SA-2021SA001345

PATIENT

DRUGS (4)
  1. FLUOROURACIL. [Concomitant]
     Active Substance: FLUOROURACIL
     Indication: PANCREATIC CARCINOMA
     Dosage: UNK UNK, QCY
     Route: 041
  2. IRINOTECAN [Concomitant]
     Active Substance: IRINOTECAN
     Indication: PANCREATIC CARCINOMA
     Dosage: UNK UNK, QCY
     Route: 041
  3. OXALIPLATIN. [Suspect]
     Active Substance: OXALIPLATIN
     Indication: PANCREATIC CARCINOMA
     Dosage: DOSE OF CURRENT CYCLE?150, CUMULATIVE DOSE?450,
     Route: 041
  4. LEUCOVORIN [FOLINIC ACID] [Concomitant]
     Active Substance: LEUCOVORIN
     Indication: PANCREATIC CARCINOMA
     Dosage: UNK UNK, QCY
     Route: 041

REACTIONS (11)
  - Decreased appetite [Unknown]
  - Fatigue [Recovered/Resolved]
  - Loss of personal independence in daily activities [Unknown]
  - Neuropathy peripheral [Recovered/Resolved]
  - Dependent personality disorder [Recovered/Resolved]
  - Paraesthesia [Recovered/Resolved]
  - Burning sensation [Recovered/Resolved]
  - Dizziness [Recovered/Resolved]
  - Impaired quality of life [Unknown]
  - Neurotoxicity [Recovered/Resolved]
  - Malaise [Unknown]
